FAERS Safety Report 24552016 (Version 2)
Quarter: 2024Q4

REPORT INFORMATION
  Report Type: Spontaneous
  Country: FR (occurrence: FR)
  Receive Date: 20241026
  Receipt Date: 20241127
  Transmission Date: 20250115
  Serious: Yes (Other)
  Sender: AUROBINDO
  Company Number: FR-AFSSAPS-TO2024001872

PATIENT
  Age: 73 Year
  Sex: Male

DRUGS (4)
  1. FENOFIBRATE [Suspect]
     Active Substance: FENOFIBRATE
     Indication: Azotaemia
     Dosage: 80 MILLIGRAM, ONCE A DAY (LC)
     Route: 048
  2. INDAPAMIDE\PERINDOPRIL [Suspect]
     Active Substance: INDAPAMIDE\PERINDOPRIL
     Indication: Hypertension
     Dosage: 1 DOSAGE FORM, ONCE A DAY (LC)
     Route: 048
  3. CARTEOLOL HYDROCHLORIDE [Suspect]
     Active Substance: CARTEOLOL HYDROCHLORIDE
     Indication: Glaucoma
     Dosage: 1 GTT DROPS (DROP (1/12 MILLILITRE)), ONCE A DAY, (LC)
  4. LERCANIDIPINE [Suspect]
     Active Substance: LERCANIDIPINE
     Indication: Hypertension
     Dosage: 20 MILLIGRAM, ONCE A DAY (LC)
     Route: 048

REACTIONS (3)
  - Blood creatine phosphokinase increased [Recovering/Resolving]
  - Muscular weakness [Recovering/Resolving]
  - Amyotrophy [Recovering/Resolving]

NARRATIVE: CASE EVENT DATE: 20200101
